FAERS Safety Report 9450846 (Version 2)
Quarter: 2013Q4

REPORT INFORMATION
  Report Type: Spontaneous
  Country: US (occurrence: US)
  Receive Date: 20130809
  Receipt Date: 20131127
  Transmission Date: 20140711
  Serious: No
  Sender: FDA-Public Use
  Company Number: US-B.I. PHARMACEUTICALS,INC./RIDGEFIELD-2013-BI-23551BP

PATIENT
  Age: 60 Year
  Sex: Female
  Weight: 43 kg

DRUGS (22)
  1. SPIRIVA [Suspect]
     Indication: CHRONIC OBSTRUCTIVE PULMONARY DISEASE
     Dosage: 18 MCG
     Route: 055
     Dates: start: 201212, end: 201307
  2. FLOVENT [Concomitant]
     Indication: CHRONIC OBSTRUCTIVE PULMONARY DISEASE
  3. SERVENT [Concomitant]
     Indication: CHRONIC OBSTRUCTIVE PULMONARY DISEASE
  4. CEFUROXIME(CEFTIN) [Concomitant]
     Dosage: 1000 MG
     Route: 048
  5. PREDENISONE (DELTASONE) [Concomitant]
  6. ALPRAZOLAM (XANAX) [Concomitant]
     Dosage: 0.5-1 TAB
     Route: 048
  7. CARVEDILOL (COGEG) [Concomitant]
     Dosage: 6.25 MG
     Route: 048
  8. CHOLECALCIFEROL (VITAMIN D) [Concomitant]
     Dosage: 2000 UNITS,
     Route: 048
  9. DIAZAPAM (VALIUM) [Concomitant]
     Dosage: 10 MG
     Route: 048
  10. FERROUS SULFATE (FEOSOL) [Concomitant]
     Dosage: 325 MG
     Route: 048
  11. FLUTICASONE (FLOVENT HFA) [Concomitant]
     Dosage: 220 MCG
     Route: 055
  12. MCG/ACTUATION INHALER [Concomitant]
     Dosage: PRN
     Route: 055
  13. LEVALBUTEROL (XOPENEX) [Concomitant]
     Dosage: 270 MCG
     Route: 048
  14. GABAPENTIN [Concomitant]
     Dosage: 1200 MG
     Route: 048
  15. NITROCLYCERINE (NITROSTAT) [Concomitant]
     Dosage: 115.2 MG
     Route: 048
  16. PRAMIPEXOLE (MIRAPEX) [Concomitant]
     Dosage: 0.5 MG
     Route: 048
  17. SALMETEROL (SEREVNT) [Concomitant]
     Dosage: 50 MCG DOSE DISKUS INHALER
     Route: 055
  18. SIMVASTATINE [Concomitant]
     Dosage: 20 MG
     Route: 048
  19. TIOTROPIUM (SPIRIVA) [Concomitant]
     Dosage: 18 MCG
     Route: 055
  20. VITAMIN B-12 (CYNOCOBALAMINE) [Concomitant]
     Dosage: 1440000 MCG
     Route: 048
  21. ASPIRIN [Concomitant]
     Dosage: 81 MG
     Route: 048
  22. CLOPIDOGREL (PLAVIX) [Concomitant]
     Dosage: 75 MG
     Route: 048

REACTIONS (4)
  - Pneumonia [Not Recovered/Not Resolved]
  - Product quality issue [Unknown]
  - Product quality issue [Unknown]
  - Product quality issue [Unknown]
